FAERS Safety Report 20833852 (Version 1)
Quarter: 2022Q2

REPORT INFORMATION
  Report Type: Spontaneous
  Country: BE (occurrence: BE)
  Receive Date: 20220516
  Receipt Date: 20220516
  Transmission Date: 20220720
  Serious: Yes (Other)
  Sender: FDA-Public Use
  Company Number: BE-PFIZER INC-202200674884

PATIENT
  Age: 57 Year
  Sex: Male

DRUGS (3)
  1. AXITINIB [Suspect]
     Active Substance: AXITINIB
     Indication: Metastatic renal cell carcinoma
     Dosage: UNK
     Dates: start: 202105
  2. PEMBROLIZUMAB [Suspect]
     Active Substance: PEMBROLIZUMAB
     Indication: Metastatic renal cell carcinoma
     Dosage: UNK
     Dates: start: 202105
  3. DENOSUMAB [Concomitant]
     Active Substance: DENOSUMAB
     Indication: Metastatic renal cell carcinoma
     Dosage: UNK
     Dates: start: 202105

REACTIONS (8)
  - Basedow^s disease [Unknown]
  - Osteonecrosis of jaw [Unknown]
  - Cervical vertebral fracture [Unknown]
  - Post procedural complication [Unknown]
  - Cancer pain [Unknown]
  - Neoplasm progression [Unknown]
  - Neutrophil count increased [Unknown]
  - Off label use [Unknown]

NARRATIVE: CASE EVENT DATE: 20210501
